FAERS Safety Report 4569815-3 (Version None)
Quarter: 2005Q1

REPORT INFORMATION
  Report Type: 
  Country: None (occurrence: None)
  Receive Date: 20050203
  Receipt Date: 20041028
  Transmission Date: 20050727
  Serious: Yes (Life-Threatening, Hospitalization, Disabling)
  Sender: FDA-Public Use
  Company Number: US-MERCK-0410USA04371

PATIENT
  Age: 55 Year
  Sex: Female

DRUGS (7)
  1. VIOXX [Suspect]
     Indication: OSTEOARTHRITIS
     Route: 048
     Dates: end: 20040201
  2. VIOXX [Suspect]
     Route: 048
     Dates: start: 20011127
  3. ZIAC [Concomitant]
     Route: 065
  4. POTASSIUM (UNSPECIFIED) [Concomitant]
     Route: 065
  5. ALLEGRA [Concomitant]
     Route: 065
  6. ZOCOR [Concomitant]
     Route: 048
  7. NEXIUM [Concomitant]
     Route: 065

REACTIONS (35)
  - ABDOMINAL DISTENSION [None]
  - ARTHRALGIA [None]
  - ASTHENIA [None]
  - ASTHMA [None]
  - BACK PAIN [None]
  - BRONCHOSPASM [None]
  - CHEST PAIN [None]
  - DEPRESSION [None]
  - DERMATOSIS [None]
  - DYSPEPSIA [None]
  - EUSTACHIAN TUBE DYSFUNCTION [None]
  - FATIGUE [None]
  - FOLLICULITIS [None]
  - GASTROENTERITIS [None]
  - GRAVITATIONAL OEDEMA [None]
  - GROIN PAIN [None]
  - HEADACHE [None]
  - HYPERLIPIDAEMIA [None]
  - HYPERTENSION [None]
  - MYALGIA [None]
  - NAUSEA [None]
  - NECK MASS [None]
  - OTITIS MEDIA [None]
  - PAIN IN EXTREMITY [None]
  - PNEUMONIA [None]
  - RADICULOPATHY [None]
  - RECTOCELE [None]
  - RHINITIS ALLERGIC [None]
  - SINUSITIS [None]
  - TUBERCULIN TEST POSITIVE [None]
  - UPPER RESPIRATORY TRACT INFECTION [None]
  - URINARY TRACT INFECTION [None]
  - VISION BLURRED [None]
  - VISUAL ACUITY REDUCED [None]
  - WEIGHT INCREASED [None]
